FAERS Safety Report 7261439-2 (Version None)
Quarter: 2011Q1

REPORT INFORMATION
  Report Type: 
  Country: None (occurrence: None)
  Receive Date: 20110130
  Receipt Date: 20100929
  Transmission Date: 20110831
  Serious: No
  Sender: FDA-Public Use
  Company Number: US-ABBOTT-10P-163-0674925-00

PATIENT
  Sex: Female
  Weight: 61.29 kg

DRUGS (9)
  1. FLUOXETINE [Concomitant]
     Indication: ANXIETY
     Route: 048
  2. PRILOSEC [Concomitant]
     Indication: GASTROOESOPHAGEAL REFLUX DISEASE
     Dosage: OTC
     Route: 048
  3. AMBIEN [Concomitant]
     Indication: PAIN IN EXTREMITY
     Route: 048
  4. PREMARIN [Concomitant]
     Indication: HORMONE REPLACEMENT THERAPY
     Route: 048
  5. HUMIRA [Suspect]
     Indication: RHEUMATOID ARTHRITIS
     Route: 058
     Dates: start: 20080101
  6. ADVIL PM [Concomitant]
     Indication: INSOMNIA
     Route: 048
  7. PREMARIN [Concomitant]
     Indication: HYSTERECTOMY
  8. AMBIEN [Concomitant]
     Indication: INSOMNIA
  9. LOVASTATIN [Concomitant]
     Indication: BLOOD CHOLESTEROL
     Route: 048

REACTIONS (5)
  - STRESS [None]
  - INJECTION SITE HAEMORRHAGE [None]
  - MUCOSAL INFLAMMATION [None]
  - SCAB [None]
  - INJECTION SITE HAEMATOMA [None]
